FAERS Safety Report 17108509 (Version 10)
Quarter: 2020Q3

REPORT INFORMATION
  Report Type: Spontaneous
  Country: US (occurrence: US)
  Receive Date: 20191203
  Receipt Date: 20200715
  Transmission Date: 20201102
  Serious: Yes (Hospitalization)
  Sender: FDA-Public Use
  Company Number: US-ACTELION-A-NJ2019-198586

PATIENT
  Age: 51 Year
  Sex: Female
  Weight: 99.77 kg

DRUGS (7)
  1. ALYQ [Concomitant]
     Active Substance: TADALAFIL
  2. VELETRI [Suspect]
     Active Substance: EPOPROSTENOL
     Dosage: 32 NG/KG, PER MIN
     Route: 042
  3. VELETRI [Suspect]
     Active Substance: EPOPROSTENOL
     Dosage: 10 NG/KG, PER MIN
     Route: 042
  4. VELETRI [Suspect]
     Active Substance: EPOPROSTENOL
     Dosage: 30 NG/KG, PER MIN
     Route: 042
  5. VELETRI [Suspect]
     Active Substance: EPOPROSTENOL
     Dosage: 7 NG/KG, PER MIN
     Route: 042
  6. VELETRI [Suspect]
     Active Substance: EPOPROSTENOL
     Indication: PULMONARY ARTERIAL HYPERTENSION
     Dosage: 34 NG/KG, PER MIN
     Route: 042
  7. VELETRI [Suspect]
     Active Substance: EPOPROSTENOL
     Dosage: 16 NG/KG, PER MIN
     Route: 042

REACTIONS (17)
  - Dyspnoea [Recovering/Resolving]
  - Migraine [Unknown]
  - Catheter site infection [Recovering/Resolving]
  - Catheter site swelling [Unknown]
  - Joint swelling [Recovering/Resolving]
  - Nausea [Recovering/Resolving]
  - Headache [Recovering/Resolving]
  - Catheter site erythema [Not Recovered/Not Resolved]
  - Back pain [Unknown]
  - Retching [Unknown]
  - Peripheral swelling [Unknown]
  - Oedema peripheral [Recovering/Resolving]
  - Catheter site abscess [Unknown]
  - Unevaluable event [Unknown]
  - Catheter site rash [Unknown]
  - Catheter site haemorrhage [Unknown]
  - Arthralgia [Recovering/Resolving]

NARRATIVE: CASE EVENT DATE: 201910
